FAERS Safety Report 6805031-X (Version None)
Quarter: 2010Q2

REPORT INFORMATION
  Report Type: 
  Country: None (occurrence: None)
  Receive Date: 20100628
  Receipt Date: 20070730
  Transmission Date: 20101027
  Serious: No
  Sender: FDA-Public Use
  Company Number: US-PFIZER INC-2007063145

PATIENT
  Sex: Female
  Weight: 68.2 kg

DRUGS (5)
  1. XALATAN [Suspect]
     Indication: GLAUCOMA
     Dates: start: 20070630
  2. PREVACID [Concomitant]
  3. LIPITOR [Concomitant]
  4. BENICAR [Concomitant]
  5. DIAZIDE [Concomitant]

REACTIONS (1)
  - HEADACHE [None]
